FAERS Safety Report 5739213-5 (Version None)
Quarter: 2008Q2

REPORT INFORMATION
  Report Type: 
  Country: None (occurrence: None)
  Receive Date: 20080515
  Receipt Date: 20080514
  Transmission Date: 20081010
  Serious: Yes (Death, Hospitalization, Other)
  Sender: FDA-Public Use
  Company Number: US-BAYER-200713481BWH

PATIENT
  Age: 67 Year
  Sex: Male
  Weight: 73 kg

DRUGS (31)
  1. SORAFENIB [Suspect]
     Indication: NON-SMALL CELL LUNG CANCER
     Dosage: TOTAL DAILY DOSE: 800 MG  UNIT DOSE: 200 MG
     Route: 048
     Dates: start: 20070808, end: 20070917
  2. CARBOPLATIN [Suspect]
     Indication: NON-SMALL CELL LUNG CANCER
     Route: 042
     Dates: start: 20070807, end: 20070807
  3. CARBOPLATIN [Suspect]
     Route: 042
     Dates: start: 20070828, end: 20070828
  4. PACLITAXEL [Suspect]
     Indication: NON-SMALL CELL LUNG CANCER
     Dosage: UNIT DOSE: 225 MG/M2
     Route: 042
     Dates: start: 20070807, end: 20070807
  5. PACLITAXEL [Suspect]
     Dosage: UNIT DOSE: 225 MG/M2
     Route: 042
     Dates: start: 20070828, end: 20070828
  6. NASAL OXYGEN [Concomitant]
     Indication: CHRONIC OBSTRUCTIVE PULMONARY DISEASE
     Route: 045
  7. NASAL OXYGEN [Concomitant]
     Route: 045
     Dates: start: 20070727, end: 20070916
  8. NASAL OXYGEN [Concomitant]
     Route: 045
     Dates: start: 20070918
  9. NASAL OXYGEN [Concomitant]
     Route: 045
     Dates: start: 20070916, end: 20070918
  10. ZOLOFT [Concomitant]
     Indication: OBSESSIVE-COMPULSIVE DISORDER
     Route: 048
     Dates: start: 19950101
  11. LIPITOR [Concomitant]
     Indication: HYPERCHOLESTEROLAEMIA
     Route: 048
     Dates: start: 20011101
  12. LIPITOR [Concomitant]
     Route: 048
     Dates: start: 20070926
  13. ZANTAC [Concomitant]
     Indication: GASTROOESOPHAGEAL REFLUX DISEASE
     Route: 048
     Dates: start: 20040101
  14. MULTI-VITAMIN [Concomitant]
     Indication: VITAMIN SUPPLEMENTATION
     Route: 048
     Dates: start: 20040101
  15. ASPIRIN [Concomitant]
     Indication: CARDIOVASCULAR EVENT PROPHYLAXIS
     Route: 048
     Dates: start: 20040101
  16. ADVAIR DISKUS 100/50 [Concomitant]
     Indication: CHRONIC OBSTRUCTIVE PULMONARY DISEASE
     Route: 055
     Dates: start: 20070731
  17. ATIVAN [Concomitant]
     Indication: OBSESSIVE-COMPULSIVE DISORDER
     Route: 048
     Dates: start: 19950101
  18. VIAGRA [Concomitant]
     Indication: ERECTILE DYSFUNCTION
     Route: 048
     Dates: start: 20030101
  19. ALBUTEROL [Concomitant]
     Indication: CHRONIC OBSTRUCTIVE PULMONARY DISEASE
     Route: 055
     Dates: start: 20070916
  20. IMODIUM [Concomitant]
     Indication: DIARRHOEA
     Route: 048
     Dates: start: 20070831
  21. LOMOTIL [Concomitant]
     Indication: DIARRHOEA
     Route: 048
     Dates: start: 20070910
  22. DECADRON [Concomitant]
     Indication: ALLERGY PROPHYLAXIS
     Route: 042
     Dates: start: 20070828, end: 20070828
  23. DECADRON [Concomitant]
     Route: 048
     Dates: start: 20070827, end: 20070828
  24. DECADRON [Concomitant]
     Route: 042
     Dates: start: 20070807, end: 20070807
  25. ASPIRIN [Concomitant]
     Indication: PAIN
     Route: 048
     Dates: start: 19570101
  26. ZOFRAN [Concomitant]
     Indication: PROPHYLAXIS OF NAUSEA AND VOMITING
     Route: 042
     Dates: start: 20070807, end: 20070807
  27. ZOFRAN [Concomitant]
     Route: 042
     Dates: start: 20070828, end: 20070828
  28. PEPCID [Concomitant]
     Indication: ALLERGY PROPHYLAXIS
     Route: 042
     Dates: start: 20070807, end: 20070807
  29. PEPCID [Concomitant]
     Route: 042
     Dates: start: 20070828, end: 20070828
  30. BENADRYL [Concomitant]
     Indication: ALLERGY PROPHYLAXIS
     Route: 042
     Dates: start: 20070807, end: 20070807
  31. BENADRYL [Concomitant]
     Route: 042
     Dates: start: 20070828, end: 20070828

REACTIONS (2)
  - PNEUMONIA [None]
  - RENAL FAILURE [None]
